FAERS Safety Report 20917032 (Version 1)
Quarter: 2022Q2

REPORT INFORMATION
  Report Type: Spontaneous
  Country: US (occurrence: US)
  Receive Date: 20220606
  Receipt Date: 20220606
  Transmission Date: 20220721
  Serious: Yes (Hospitalization)
  Sender: FDA-Public Use
  Company Number: US-BEH-2022146196

PATIENT
  Age: 61 Year
  Sex: Female

DRUGS (24)
  1. HIZENTRA [Suspect]
     Active Substance: HUMAN IMMUNOGLOBULIN G
     Indication: Immunodeficiency common variable
     Dosage: 9 GRAM, QW
     Route: 058
  2. ZOSYN [Concomitant]
     Active Substance: PIPERACILLIN SODIUM\TAZOBACTAM SODIUM
     Route: 065
  3. LEVAQUIN [Concomitant]
     Active Substance: LEVOFLOXACIN
     Dosage: 750 MILLIGRAM
     Route: 065
  4. MOXIFLOXACIN [Concomitant]
     Active Substance: MOXIFLOXACIN
     Route: 065
  5. AMMONIUM LACTATE [Concomitant]
     Active Substance: AMMONIUM LACTATE
     Route: 065
  6. COLACE [Concomitant]
     Active Substance: DOCUSATE SODIUM
     Route: 065
  7. NIZORAL [Concomitant]
     Active Substance: KETOCONAZOLE
     Route: 065
  8. SENOKOT [Concomitant]
     Active Substance: SENNOSIDES
     Route: 065
  9. KETOCONAZOLE [Concomitant]
     Active Substance: KETOCONAZOLE
     Route: 065
  10. DOXYCYCLINE [Concomitant]
     Active Substance: DOXYCYCLINE
     Dosage: 100 MILLIGRAM
     Route: 065
  11. MOVANTIK [Concomitant]
     Active Substance: NALOXEGOL OXALATE
     Route: 065
  12. LEVAQUIN [Concomitant]
     Active Substance: LEVOFLOXACIN
     Dosage: 750 MILLIGRAM
     Route: 065
  13. LINZESS [Concomitant]
     Active Substance: LINACLOTIDE
     Dosage: 145 MICROGRAM
     Route: 065
  14. PROCHLORPERAZINE EDISYLATE [Concomitant]
     Active Substance: PROCHLORPERAZINE EDISYLATE
     Route: 065
  15. MOBIC [Concomitant]
     Active Substance: MELOXICAM
     Dosage: 15 MILLIGRAM
     Route: 065
  16. NIFEREX [POLYSACCHARIDE-IRON COMPLEX] [Concomitant]
     Route: 065
  17. OXYCODONE [Concomitant]
     Active Substance: OXYCODONE
     Dosage: 5 MILLIGRAM
     Route: 065
  18. XARELTO [Concomitant]
     Active Substance: RIVAROXABAN
     Dosage: 10 MILLIGRAM
     Route: 065
  19. KEFLEX [Concomitant]
     Active Substance: CEPHALEXIN
     Route: 065
  20. MORPHINE SULFATE PDRX [Concomitant]
     Route: 065
  21. NYSTATIN [Concomitant]
     Active Substance: NYSTATIN
     Route: 065
  22. CEPHALEXIN [Concomitant]
     Active Substance: CEPHALEXIN
     Route: 065
  23. LEVOFLOXACIN [Concomitant]
     Active Substance: LEVOFLOXACIN
     Route: 065
  24. CIPROFLOXACIN HYDROCHLORIDE [Concomitant]
     Active Substance: CIPROFLOXACIN HYDROCHLORIDE
     Route: 065

REACTIONS (1)
  - COVID-19 pneumonia [Unknown]

NARRATIVE: CASE EVENT DATE: 20220101
